FAERS Safety Report 15029606 (Version 1)
Quarter: 2018Q2

REPORT INFORMATION
  Report Type: Report from Study
  Country: US (occurrence: US)
  Receive Date: 20180619
  Receipt Date: 20180619
  Transmission Date: 20180711
  Serious: Yes (Disabling)
  Sender: FDA-Public Use
  Company Number: US-OTSUKA-2018_014910

PATIENT
  Sex: Female

DRUGS (1)
  1. ARIPIPRAZOLE. [Suspect]
     Active Substance: ARIPIPRAZOLE
     Indication: MAJOR DEPRESSION
     Dosage: 2 MG, UNK
     Route: 065
     Dates: start: 2012

REACTIONS (4)
  - Disability [Unknown]
  - Chronic obstructive pulmonary disease [Unknown]
  - Discomfort [Unknown]
  - Feeling abnormal [Unknown]
